FAERS Safety Report 8286768-5 (Version None)
Quarter: 2012Q2

REPORT INFORMATION
  Report Type: 
  Country: None (occurrence: None)
  Receive Date: 20120416
  Receipt Date: 20120412
  Transmission Date: 20120825
  Serious: Yes (Death)
  Sender: FDA-Public Use
  Company Number: TN-SANOFI-AVENTIS-2012SA025797

PATIENT
  Age: 64 Year
  Sex: Male

DRUGS (6)
  1. ISOSORBIDE MONONITRATE [Concomitant]
     Route: 048
     Dates: end: 20120227
  2. ASPIRIN [Concomitant]
     Route: 048
     Dates: end: 20120227
  3. INSULIN [Concomitant]
     Route: 058
     Dates: end: 20120227
  4. RAMIPRIL [Concomitant]
     Route: 048
     Dates: end: 20120227
  5. PLAVIX [Suspect]
     Route: 048
     Dates: start: 20120106, end: 20120222
  6. PLAVIX [Suspect]
     Route: 048
     Dates: start: 20120106, end: 20120222

REACTIONS (3)
  - HYPOTENSION [None]
  - ANURIA [None]
  - CARDIAC DISORDER [None]
